FAERS Safety Report 8877074 (Version 2)
Quarter: 2012Q4

REPORT INFORMATION
  Report Type: 
  Country: US (occurrence: US)
  Receive Date: 20121030
  Receipt Date: 20121128
  Transmission Date: 20130627
  Serious: Yes (Hospitalization, Other)
  Sender: FDA-Public Use
  Company Number: US-ASTELLAS-2012US010463

PATIENT
  Age: 59 Year
  Sex: Female

DRUGS (5)
  1. PROGRAF [Suspect]
     Indication: RENAL TRANSPLANT
     Dosage: 3 mg, bid
     Route: 048
     Dates: start: 2006
  2. PREDNISONE [Concomitant]
     Indication: INFLAMMATION
     Dosage: 5 mg, UID/QD
     Route: 048
     Dates: start: 20061117, end: 20121022
  3. PREDNISONE [Concomitant]
     Indication: PAIN
  4. MYFORTIC [Concomitant]
     Indication: RENAL TRANSPLANT
     Dosage: 180 mg, bid
     Route: 048
     Dates: start: 20061117, end: 20121022
  5. GABAPENTIN [Concomitant]
     Indication: NEUROPATHY PERIPHERAL
     Dosage: 800 mg, bid
     Route: 048
     Dates: start: 20061117, end: 20121022

REACTIONS (5)
  - Rehabilitation therapy [Recovered/Resolved]
  - Ileostomy closure [Unknown]
  - Large intestine operation [Unknown]
  - Enterocolitis infectious [Recovered/Resolved]
  - Infection [Recovered/Resolved]
